FAERS Safety Report 8209644-2 (Version None)
Quarter: 2012Q1

REPORT INFORMATION
  Report Type: 
  Country: None (occurrence: None)
  Receive Date: 20120228
  Receipt Date: 20110131
  Transmission Date: 20120608
  Serious: Yes (Life-Threatening, Hospitalization, Disabling, Other)
  Sender: FDA-Public Use
  Company Number: WAES 1102USA00039

PATIENT
  Age: 59 Year
  Sex: Female

DRUGS (8)
  1. LISINOPRIL [Suspect]
     Indication: HYPERTENSION
     Dosage: 40 MG/DAILY/PO
     Route: 048
     Dates: start: 20101210, end: 20110131
  2. INSULIN [Concomitant]
  3. POTASSIUM CHLORIDE [Concomitant]
  4. LOPRESSOR [Concomitant]
  5. LASIX [Concomitant]
  6. NORVASC [Concomitant]
  7. LEVEMIR [Concomitant]
  8. HYDRALAZINE HCL [Concomitant]

REACTIONS (7)
  - RENAL FAILURE [None]
  - HEPATIC FAILURE [None]
  - VOMITING [None]
  - MALAISE [None]
  - CHOLELITHIASIS [None]
  - ABDOMINAL PAIN [None]
  - NAUSEA [None]
